FAERS Safety Report 8400789-0 (Version None)
Quarter: 2012Q2

REPORT INFORMATION
  Report Type: 
  Country: None (occurrence: None)
  Receive Date: 20120531
  Receipt Date: 20120523
  Transmission Date: 20120825
  Serious: Yes (Other)
  Sender: FDA-Public Use
  Company Number: US-TEVA-340114USA

PATIENT
  Sex: Male

DRUGS (7)
  1. IBUPROFEN [Concomitant]
     Route: 048
  2. CENTA [Concomitant]
     Route: 048
  3. FENTORA [Suspect]
     Indication: PAIN
     Route: 002
  4. DIAZEPAM [Concomitant]
     Route: 048
  5. LIDOCAINE [Concomitant]
  6. FENTORA [Suspect]
     Indication: INSOMNIA
  7. VICODIN [Concomitant]
     Indication: PAIN
     Route: 048

REACTIONS (5)
  - NAUSEA [None]
  - OFF LABEL USE [None]
  - WITHDRAWAL SYNDROME [None]
  - MIGRAINE [None]
  - PAIN [None]
